FAERS Safety Report 5247787-6 (Version None)
Quarter: 2007Q1

REPORT INFORMATION
  Report Type: 
  Country: None (occurrence: None)
  Receive Date: 20070227
  Receipt Date: 20070215
  Transmission Date: 20070707
  Serious: Yes (Other)
  Sender: FDA-Public Use
  Company Number: GB-JNJFOC-20050705362

PATIENT
  Age: 27 Year
  Sex: Male

DRUGS (8)
  1. IBUPROFEN [Suspect]
     Indication: SUICIDE ATTEMPT
     Dosage: AMOUNT UNKNOWN
  2. NUROFEN [Suspect]
     Indication: SUICIDE ATTEMPT
     Dosage: AMOUNT UNKNOWN
  3. CODEINE [Suspect]
     Indication: SUICIDE ATTEMPT
     Dosage: AMOUNT UNKNOWN
  4. ALCOHOL [Suspect]
     Indication: DRUG USE FOR UNKNOWN INDICATION
  5. SEROXAT [Suspect]
  6. SEROXAT [Suspect]
     Indication: PHOBIA
  7. METHYLENEDIOXYMETHAMPHETAMINE [Concomitant]
     Indication: DRUG USE FOR UNKNOWN INDICATION
  8. COCAINE [Concomitant]
     Indication: DRUG USE FOR UNKNOWN INDICATION

REACTIONS (1)
  - MULTIPLE DRUG OVERDOSE INTENTIONAL [None]
